FAERS Safety Report 8401623-5 (Version None)
Quarter: 2012Q2

REPORT INFORMATION
  Report Type: 
  Country: None (occurrence: None)
  Receive Date: 20120601
  Receipt Date: 20120530
  Transmission Date: 20120825
  Serious: Yes (Other)
  Sender: FDA-Public Use
  Company Number: PHHY2011CA18059

PATIENT
  Sex: Male

DRUGS (4)
  1. ZOLEDRONOC ACID [Suspect]
     Dosage: UNK
     Route: 042
     Dates: start: 20110524
  2. ZOLEDRONOC ACID [Suspect]
     Dosage: UNK
     Route: 042
     Dates: start: 20120530
  3. ZOLEDRONOC ACID [Suspect]
     Indication: OSTEOPOROSIS
     Dosage: UNK
     Route: 042
     Dates: start: 20100322
  4. ANTICOAGULANTS [Concomitant]

REACTIONS (3)
  - CARPAL TUNNEL SYNDROME [None]
  - NASAL CONGESTION [None]
  - RENAL IMPAIRMENT [None]
